FAERS Safety Report 6732661-6 (Version None)
Quarter: 2010Q2

REPORT INFORMATION
  Report Type: 
  Country: None (occurrence: None)
  Receive Date: 20100519
  Receipt Date: 20090409
  Transmission Date: 20101027
  Serious: No
  Sender: FDA-Public Use
  Company Number: US-BRISTOL-MYERS SQUIBB COMPANY-14582027

PATIENT
  Age: 34 Year
  Sex: Female
  Weight: 48 kg

DRUGS (1)
  1. BARACLUDE [Suspect]
     Indication: HEPATITIS B

REACTIONS (2)
  - FATIGUE [None]
  - WHITE BLOOD CELL COUNT DECREASED [None]
